FAERS Safety Report 24325723 (Version 1)
Quarter: 2024Q3

REPORT INFORMATION
  Report Type: Spontaneous
  Country: CH (occurrence: CH)
  Receive Date: 20240917
  Receipt Date: 20240917
  Transmission Date: 20241016
  Serious: Yes (Death, Life-Threatening, Hospitalization)
  Sender: CHEPLAPHARM
  Company Number: CH-CHEPLA-2024011718

PATIENT
  Age: 61 Year
  Sex: Female

DRUGS (4)
  1. ETOPOSIDE PHOSPHATE [Suspect]
     Active Substance: ETOPOSIDE PHOSPHATE
     Indication: Small cell lung cancer
     Dosage: 100 MG/M2 (DOSE PROTOCOL 190 MG). SECOND CYCLE
     Dates: start: 201911
  2. CARBOPLATIN [Suspect]
     Active Substance: CARBOPLATIN
     Indication: Small cell lung cancer
     Dates: start: 202001
  3. CISPLATIN [Suspect]
     Active Substance: CISPLATIN
     Indication: Small cell lung cancer
     Dosage: 25 MG/M2 (DOSE PROTOCOL 45 MG)
     Dates: start: 201911
  4. IRINOTECAN [Suspect]
     Active Substance: IRINOTECAN
     Indication: Small cell lung cancer
     Dates: start: 202001

REACTIONS (8)
  - Progressive multifocal leukoencephalopathy [Fatal]
  - CNS ventriculitis [Fatal]
  - Cerebral atrophy [Fatal]
  - Haematotoxicity [Unknown]
  - Dyspnoea [Recovered/Resolved]
  - Cardio-respiratory arrest [Recovered/Resolved]
  - Bronchospasm [Recovered/Resolved]
  - Diarrhoea [Unknown]

NARRATIVE: CASE EVENT DATE: 20210901
